FAERS Safety Report 5306569-7 (Version None)
Quarter: 2007Q2

REPORT INFORMATION
  Report Type: 
  Country: None (occurrence: None)
  Receive Date: 20070424
  Receipt Date: 20070412
  Transmission Date: 20071010
  Serious: Yes (Life-Threatening)
  Sender: FDA-Public Use
  Company Number: AT-PFIZER INC-2007027418

PATIENT
  Age: 24 Year
  Sex: Female

DRUGS (6)
  1. ZELDOX (CAPSULES) [Suspect]
     Indication: BIPOLAR DISORDER
     Route: 048
     Dates: start: 20070322, end: 20070401
  2. LAMICTAL [Concomitant]
     Indication: BIPOLAR DISORDER
  3. TRITTICO [Concomitant]
     Indication: BIPOLAR DISORDER
  4. SEROQUEL [Concomitant]
  5. FLUOXETINE [Concomitant]
  6. XANOR [Concomitant]
     Indication: INSOMNIA

REACTIONS (6)
  - AGGRESSION [None]
  - ASTHENIA [None]
  - DISTURBANCE IN ATTENTION [None]
  - DIZZINESS [None]
  - SUICIDAL BEHAVIOUR [None]
  - TACHYCARDIA [None]
